FAERS Safety Report 5856657-1 (Version None)
Quarter: 2008Q3

REPORT INFORMATION
  Report Type: 
  Country: None (occurrence: None)
  Receive Date: 20080825
  Receipt Date: 20080814
  Transmission Date: 20090109
  Serious: Yes (Hospitalization)
  Sender: FDA-Public Use
  Company Number: US-AVENTIS-200817793GDDC

PATIENT
  Age: 75 Year
  Sex: Female

DRUGS (12)
  1. LEFLUNOMIDE [Suspect]
     Indication: RHEUMATOID ARTHRITIS
     Route: 048
     Dates: start: 20071201
  2. ENBREL [Suspect]
     Indication: RHEUMATOID ARTHRITIS
     Route: 058
  3. ADALIMUMAB [Suspect]
     Dosage: DOSE QUANTITY: 1
     Route: 058
     Dates: start: 20031106
  4. PREDNISONE TAB [Concomitant]
     Dosage: DOSE: UNK
  5. METOPROLOL TARTRATE [Concomitant]
     Dosage: DOSE: UNK
  6. FUROSEMIDE [Concomitant]
     Dosage: DOSE: UNK
  7. GLYBURIDE AND METFORMIN HCL [Concomitant]
     Dosage: DOSE: UNK
  8. EZETIMIBE [Concomitant]
     Dosage: DOSE: UNK
  9. SIMVASTATIN [Concomitant]
     Dosage: DOSE: UNK
  10. WARFARIN SODIUM [Concomitant]
     Dosage: DOSE: UNK
  11. LEVOTHYROXINE SODIUM [Concomitant]
     Dosage: DOSE: UNK
  12. PIOGLITAZONE HCL [Concomitant]
     Dosage: DOSE: UNK

REACTIONS (2)
  - DEHYDRATION [None]
  - HYPERGLYCAEMIA [None]
